FAERS Safety Report 8312209-5 (Version None)
Quarter: 2012Q1

REPORT INFORMATION
  Report Type: 
  Country: None (occurrence: None)
  Receive Date: 20120315
  Receipt Date: 20110602
  Transmission Date: 20120608
  Serious: Yes (Other)
  Sender: FDA-Public Use
  Company Number: PHHY2011US31489

PATIENT
  Age: 45 Year
  Sex: Female

DRUGS (4)
  1. VITAMIN D [Concomitant]
  2. PROZAC [Concomitant]
  3. GILENYA [Suspect]
     Indication: MULTIPLE SCLEROSIS
     Dosage: 0.5 MG, QD, ORAL
     Route: 048
     Dates: start: 20110302, end: 20110526
  4. BACLOFEN [Concomitant]

REACTIONS (3)
  - MIGRAINE [None]
  - FLUID RETENTION [None]
  - HEADACHE [None]
